FAERS Safety Report 18961138 (Version 4)
Quarter: 2021Q3

REPORT INFORMATION
  Report Type: Spontaneous
  Country: IT (occurrence: IT)
  Receive Date: 20210303
  Receipt Date: 20210708
  Transmission Date: 20211014
  Serious: Yes (Other)
  Sender: FDA-Public Use
  Company Number: IT-AUROBINDO-AUR-APL-2021-008526

PATIENT
  Age: 62 Year
  Sex: Female
  Weight: 47 kg

DRUGS (5)
  1. FLUOROURACILE MYLAN [Suspect]
     Active Substance: FLUOROURACIL
     Indication: ADENOCARCINOMA OF COLON
     Dosage: 3520 MILLIGRAM, CYCLICAL
     Route: 042
     Dates: start: 20210201
  2. ERBITUX [Suspect]
     Active Substance: CETUXIMAB
     Indication: ADENOCARCINOMA OF COLON
     Dosage: 580 MILLIGRAM, CYCLICAL
     Route: 042
     Dates: start: 20210201
  3. IRINOTECAN [Suspect]
     Active Substance: IRINOTECAN
     Indication: ADENOCARCINOMA OF COLON
     Dosage: 185 MILLIGRAM, CYCLICAL
     Route: 042
     Dates: start: 20210201
  4. SODIO LEVOFOLINATO MEDAC [Suspect]
     Active Substance: LEVOLEUCOVORIN DISODIUM
     Indication: ADENOCARCINOMA OF COLON
     Dosage: 290 MILLIGRAM, CYCLICAL
     Route: 042
     Dates: start: 20210201
  5. FLUOROURACILE MYLAN [Suspect]
     Active Substance: FLUOROURACIL
     Dosage: 580 MILLIGRAM, CYCLICAL
     Route: 040
     Dates: start: 20210201

REACTIONS (8)
  - Neutropenia [Not Recovered/Not Resolved]
  - Hypersensitivity [Not Recovered/Not Resolved]
  - Diarrhoea [Not Recovered/Not Resolved]
  - Hypertransaminasaemia [Not Recovered/Not Resolved]
  - Nausea [Not Recovered/Not Resolved]
  - Dyspepsia [Not Recovered/Not Resolved]
  - Folliculitis [Not Recovered/Not Resolved]
  - Febrile neutropenia [Not Recovered/Not Resolved]

NARRATIVE: CASE EVENT DATE: 20210215
